FAERS Safety Report 9364389 (Version 1)
Quarter: 2013Q2

REPORT INFORMATION
  Report Type: Spontaneous
  Country: JP (occurrence: JP)
  Receive Date: 20130624
  Receipt Date: 20130624
  Transmission Date: 20140414
  Serious: Yes (Hospitalization)
  Sender: FDA-Public Use
  Company Number: JP-TEVA-413528ISR

PATIENT
  Age: 61 Year
  Sex: Female

DRUGS (2)
  1. GEMCITABINE [Suspect]
     Indication: LARGE CELL LUNG CANCER STAGE IV
     Dosage: 700 MG/M2 ON DAYS 1 AND 8
     Dates: start: 201010
  2. BEVACIZUMAB [Suspect]
     Indication: LARGE CELL LUNG CANCER STAGE IV
     Dosage: 500 MG/M2, D1
     Dates: start: 201010

REACTIONS (1)
  - Thrombotic thrombocytopenic purpura [Recovered/Resolved]
